FAERS Safety Report 20966399 (Version 1)
Quarter: 2022Q2

REPORT INFORMATION
  Report Type: Spontaneous
  Country: NL (occurrence: NL)
  Receive Date: 20220616
  Receipt Date: 20220616
  Transmission Date: 20220721
  Serious: Yes (Other)
  Sender: FDA-Public Use
  Company Number: None

PATIENT
  Sex: Female

DRUGS (1)
  1. AJOVY [Suspect]
     Active Substance: FREMANEZUMAB-VFRM
     Indication: Migraine
     Dosage: FREMANEZUMAB INJVLST 150MG/ML / AJOVY INJVLST 150MG/ML PEN 1.5ML ,THERAPY END DATE : ASKU
     Dates: start: 202007

REACTIONS (1)
  - Drug-induced liver injury [Not Recovered/Not Resolved]
